FAERS Safety Report 4264283-3 (Version None)
Quarter: 2004Q1

REPORT INFORMATION
  Report Type: 
  Country: None (occurrence: None)
  Receive Date: 20040102
  Receipt Date: 20031229
  Transmission Date: 20041129
  Serious: Yes (Death)
  Sender: FDA-Public Use
  Company Number: 200314361BCC

PATIENT
  Age: 76 Year
  Sex: Male
  Weight: 68.0396 kg

DRUGS (5)
  1. ALEVE (CAPLET) [Suspect]
     Indication: PAIN IN EXTREMITY
     Dosage: 220 MG, QD, ORAL
     Route: 048
     Dates: end: 20031120
  2. LASIX [Concomitant]
  3. LOMOTIL [Concomitant]
  4. RANITIDINE [Concomitant]
  5. MULTIVITAMIN [Concomitant]

REACTIONS (5)
  - CARCINOMA [None]
  - GLOSSODYNIA [None]
  - REFUSAL OF TREATMENT BY PATIENT [None]
  - THROAT IRRITATION [None]
  - THROMBOSIS [None]
